FAERS Safety Report 15149587 (Version 2)
Quarter: 2019Q1

REPORT INFORMATION
  Report Type: Spontaneous
  Country: US (occurrence: US)
  Receive Date: 20180716
  Receipt Date: 20190114
  Transmission Date: 20190417
  Serious: No
  Sender: FDA-Public Use
  Company Number: US-VANDA PHARMACEUTICALS, INC-2018TASUS002023

PATIENT
  Age: 52 Year
  Sex: Female

DRUGS (3)
  1. HETLIOZ [Suspect]
     Active Substance: TASIMELTEON
     Indication: BLINDNESS
     Dosage: 20 MG, ONCE DAILY
     Route: 048
     Dates: start: 201711, end: 201712
  2. HETLIOZ [Suspect]
     Active Substance: TASIMELTEON
     Indication: NON-24-HOUR SLEEP-WAKE DISORDER
  3. HETLIOZ [Suspect]
     Active Substance: TASIMELTEON
     Indication: CIRCADIAN RHYTHM SLEEP DISORDER
     Dosage: 20 MG,ONCE DAILY
     Dates: start: 20180112

REACTIONS (8)
  - Headache [Unknown]
  - Anxiety [Unknown]
  - Incoherent [Recovered/Resolved]
  - Nervousness [Unknown]
  - Sleep disorder [Unknown]
  - Balance disorder [Unknown]
  - Dizziness [Recovered/Resolved]
  - Feeling jittery [Unknown]

NARRATIVE: CASE EVENT DATE: 201712
